FAERS Safety Report 24686921 (Version 3)
Quarter: 2025Q2

REPORT INFORMATION
  Report Type: Report from Study
  Country: CA (occurrence: CA)
  Receive Date: 20241202
  Receipt Date: 20250404
  Transmission Date: 20250716
  Serious: Yes (Other)
  Sender: SANDOZ
  Company Number: CA-SANDOZ-SDZ2023CA072206

PATIENT
  Sex: Female
  Weight: 49.887 kg

DRUGS (4)
  1. HYRIMOZ [Suspect]
     Active Substance: ADALIMUMAB-ADAZ
     Dosage: 40 MG, QW
     Route: 058
     Dates: start: 20250120
  2. HYRIMOZ [Suspect]
     Active Substance: ADALIMUMAB-ADAZ
     Indication: Crohn^s disease
     Dosage: 40MG Q2WEEKS; BIWEEKLY
     Route: 058
     Dates: start: 20231109, end: 20241121
  3. BUDESONIDE [Concomitant]
     Active Substance: BUDESONIDE
     Indication: Product used for unknown indication
     Route: 065
  4. GRAVOL [Concomitant]
     Active Substance: DIMENHYDRINATE
     Indication: Product used for unknown indication
     Dosage: 50 MG, USE 1-2 TABLETS EVERY 4 HOURS
     Route: 065

REACTIONS (18)
  - Crohn^s disease [Unknown]
  - Inflammatory bowel disease [Unknown]
  - Colitis [Unknown]
  - Somnolence [Unknown]
  - Sleep disorder [Unknown]
  - Illness [Unknown]
  - Impaired quality of life [Unknown]
  - Brain fog [Unknown]
  - Ulcer [Unknown]
  - Weight decreased [Unknown]
  - Arthralgia [Unknown]
  - Malaise [Unknown]
  - Pain [Unknown]
  - Constipation [Unknown]
  - Depression [Unknown]
  - Asthenia [Unknown]
  - Alopecia [Unknown]
  - Off label use [Unknown]

NARRATIVE: CASE EVENT DATE: 20250101
